FAERS Safety Report 19021058 (Version 1)
Quarter: 2021Q1

REPORT INFORMATION
  Report Type: Report from Study
  Country: GB (occurrence: GB)
  Receive Date: 20210317
  Receipt Date: 20210317
  Transmission Date: 20210420
  Serious: Yes (Death)
  Sender: FDA-Public Use
  Company Number: GB-BAYER-2021-102777

PATIENT
  Age: 68 Year
  Sex: Female
  Weight: 78 kg

DRUGS (5)
  1. HEPARIN [Concomitant]
     Active Substance: HEPARIN SODIUM
     Dosage: 70 INTERNATIONAL UNIT
     Dates: start: 20170904, end: 20170904
  2. PLATELETS [Concomitant]
     Active Substance: HUMAN PLATELET, ALLOGENIC
     Dosage: 600 MILLILITRE
     Dates: start: 20170904, end: 20170904
  3. RED BLOOD CELLS [Concomitant]
     Active Substance: HUMAN RED BLOOD CELL
     Dosage: 1400 MILLILITRE
     Dates: start: 20170904, end: 20170904
  4. APROTININ 10,000 KIU/ML INJECTION BP (APROTININ) [Suspect]
     Active Substance: APROTININ
     Indication: AORTIC VALVE REPLACEMENT
     Dosage: 350 MILLILITRE
     Route: 042
     Dates: start: 20170904, end: 20170904
  5. FRESH FROZEN PLASMA [Concomitant]
     Active Substance: HUMAN PLASMA
     Dosage: 1350 MILLILITRE
     Dates: start: 20170904, end: 20170904

REACTIONS (4)
  - Product use in unapproved indication [Unknown]
  - Cardiac failure acute [Fatal]
  - Off label use [Unknown]
  - Thrombotic microangiopathy [Fatal]

NARRATIVE: CASE EVENT DATE: 20170904
